FAERS Safety Report 5485829-3 (Version None)
Quarter: 2007Q4

REPORT INFORMATION
  Report Type: 
  Country: None (occurrence: None)
  Receive Date: 20071015
  Receipt Date: 20071003
  Transmission Date: 20080405
  Serious: Yes (Other)
  Sender: FDA-Public Use
  Company Number: US-WYE-H00530807

PATIENT
  Age: 24 Year
  Sex: Female

DRUGS (2)
  1. ADVIL PM [Suspect]
     Route: 048
  2. TYLENOL (CAPLET) [Suspect]
     Dosage: 8 RAPID RELEASE GEL CAPLETS TWICE DAILY
     Route: 048

REACTIONS (3)
  - FLANK PAIN [None]
  - LIVER DISORDER [None]
  - OVERDOSE [None]
